FAERS Safety Report 13746274 (Version 1)
Quarter: 2017Q3

REPORT INFORMATION
  Report Type: Spontaneous
  Country: FR (occurrence: FR)
  Receive Date: 20170712
  Receipt Date: 20170712
  Transmission Date: 20171127
  Serious: Yes (Hospitalization)
  Sender: FDA-Public Use
  Company Number: FR-ASTRAZENECA-2017SE70784

PATIENT
  Age: 32924 Day
  Sex: Female

DRUGS (11)
  1. PAROXETINE. [Suspect]
     Active Substance: PAROXETINE
     Indication: DEPRESSION
     Route: 048
  2. BRILIQUE [Suspect]
     Active Substance: TICAGRELOR
     Indication: CORONARY ANGIOPLASTY
     Route: 048
     Dates: start: 20170601
  3. RAMIPRIL. [Concomitant]
     Active Substance: RAMIPRIL
  4. BRILIQUE [Suspect]
     Active Substance: TICAGRELOR
     Indication: CORONARY ANGIOPLASTY
     Route: 048
     Dates: start: 201607, end: 20170524
  5. PRAVASTATIN. [Concomitant]
     Active Substance: PRAVASTATIN
  6. EUPANTOL [Concomitant]
     Active Substance: PANTOPRAZOLE SODIUM
  7. FUROSEMIDE. [Concomitant]
     Active Substance: FUROSEMIDE
  8. TEMERIT [Concomitant]
     Active Substance: NEBIVOLOL
  9. KARDEGIC [Suspect]
     Active Substance: ASPIRIN LYSINE
     Indication: CORONARY ANGIOPLASTY
     Route: 048
     Dates: start: 201607, end: 20170420
  10. TARDYFERON [Concomitant]
     Active Substance: FERROUS SULFATE
  11. SERESTA [Concomitant]
     Active Substance: OXAZEPAM

REACTIONS (2)
  - Melaena [Recovered/Resolved]
  - Normochromic normocytic anaemia [Recovered/Resolved]

NARRATIVE: CASE EVENT DATE: 20170420
